FAERS Safety Report 22172937 (Version 1)
Quarter: 2023Q2

REPORT INFORMATION
  Report Type: Report from Study
  Country: DE (occurrence: DE)
  Receive Date: 20230404
  Receipt Date: 20230404
  Transmission Date: 20230722
  Serious: Yes (Hospitalization, Other)
  Sender: FDA-Public Use
  Company Number: DE-MYLANLABS-2023M1034803

PATIENT
  Sex: Male
  Weight: 91 kg

DRUGS (9)
  1. HULIO [Suspect]
     Active Substance: ADALIMUMAB-FKJP
     Indication: Psoriasis
     Dosage: 40 MILLIGRAM, Q2W
     Route: 058
     Dates: start: 20200706
  2. HULIO [Suspect]
     Active Substance: ADALIMUMAB-FKJP
     Indication: Psoriatic arthropathy
  3. LEVOTHYROXINE SODIUM [Concomitant]
     Active Substance: LEVOTHYROXINE SODIUM
     Dosage: UNK (ONCE)
     Route: 048
     Dates: start: 20210423
  4. SPIRONOLACTONE [Concomitant]
     Active Substance: SPIRONOLACTONE
     Dosage: UNK (ONCE)
     Route: 048
     Dates: start: 20210430, end: 20210504
  5. APIXABAN [Concomitant]
     Active Substance: APIXABAN
     Dosage: UNK (2X)
     Route: 048
     Dates: start: 20210503, end: 20210511
  6. APIXABAN [Concomitant]
     Active Substance: APIXABAN
     Dosage: UNK (2X)
     Route: 048
     Dates: start: 20210512
  7. METAMIZOLE [Concomitant]
     Active Substance: METAMIZOLE
     Dosage: UNK
     Route: 065
  8. PANTOPRAZOLE SODIUM [Concomitant]
     Active Substance: PANTOPRAZOLE SODIUM
     Dosage: UNK (PRN)
     Route: 065
  9. NOVALGIN (METAMIZOLE SODIUM) [Concomitant]
     Active Substance: METAMIZOLE SODIUM
     Dosage: UNK (PRN) (500)
     Route: 065

REACTIONS (24)
  - Emphysema [Unknown]
  - Pulmonary hypertension [Unknown]
  - Right ventricular failure [Unknown]
  - Pericardial effusion [Unknown]
  - Dyspnoea [Unknown]
  - Viral infection [Unknown]
  - Pulmonary embolism [Unknown]
  - Pneumonia [Recovered/Resolved]
  - Musculoskeletal chest pain [Unknown]
  - Oedema peripheral [Unknown]
  - Lymphadenopathy mediastinal [Unknown]
  - Fall [Unknown]
  - Muscle tightness [Unknown]
  - Pleurisy [Unknown]
  - Bronchitis [Unknown]
  - Colitis [Unknown]
  - Atelectasis [Unknown]
  - Hilar lymphadenopathy [Unknown]
  - Nausea [Unknown]
  - Vomiting [Unknown]
  - Pyrexia [Unknown]
  - Urinary tract infection [Unknown]
  - Chest pain [Unknown]
  - Pleural effusion [Unknown]

NARRATIVE: CASE EVENT DATE: 20210401
